FAERS Safety Report 6326716-8 (Version None)
Quarter: 2009Q3

REPORT INFORMATION
  Report Type: 
  Country: None (occurrence: None)
  Receive Date: 20090825
  Receipt Date: 20090817
  Transmission Date: 20100115
  Serious: Yes (Hospitalization, Other)
  Sender: FDA-Public Use
  Company Number: PHHY2009TW34557

PATIENT
  Age: 52 Year
  Sex: Female

DRUGS (1)
  1. CARBAMAZEPINE [Suspect]
     Indication: MUSCULOSKELETAL PAIN

REACTIONS (15)
  - BLISTER [None]
  - DEEP VEIN THROMBOSIS [None]
  - DIARRHOEA [None]
  - ENTEROCOLITIS INFECTIOUS [None]
  - ERYTHEMA [None]
  - GENERALISED ERYTHEMA [None]
  - INFECTION [None]
  - INFERIOR VENA CAVAL OCCLUSION [None]
  - PURULENT DISCHARGE [None]
  - PYREXIA [None]
  - SKIN EXFOLIATION [None]
  - SWELLING [None]
  - TOXIC EPIDERMAL NECROLYSIS [None]
  - VENOUS OCCLUSION [None]
  - WOUND INFECTION [None]
